FAERS Safety Report 21409187 (Version 1)
Quarter: 2022Q4

REPORT INFORMATION
  Report Type: Report from Study
  Country: US (occurrence: US)
  Receive Date: 20221004
  Receipt Date: 20221004
  Transmission Date: 20230113
  Serious: Yes (Other)
  Sender: FDA-Public Use
  Company Number: US-ABBVIE-22K-163-4391977-00

PATIENT
  Age: 37 Year
  Sex: Female

DRUGS (2)
  1. HUMIRA [Suspect]
     Active Substance: ADALIMUMAB
     Indication: Hidradenitis
     Dosage: TIME INTERVAL: 1 TOTAL: DAY 1?CITRATE FREE
     Route: 058
     Dates: start: 20211101, end: 20211101
  2. HUMIRA [Suspect]
     Active Substance: ADALIMUMAB
     Dosage: DAY 15?CITRATE FREE
     Route: 058
     Dates: start: 20211115, end: 20220406

REACTIONS (4)
  - Hidradenitis [Unknown]
  - Infection [Recovered/Resolved]
  - Blood cholesterol increased [Unknown]
  - Impaired self-care [Unknown]

NARRATIVE: CASE EVENT DATE: 20220409
